FAERS Safety Report 4464527-9 (Version None)
Quarter: 2004Q3

REPORT INFORMATION
  Report Type: 
  Country: None (occurrence: None)
  Receive Date: 20040929
  Receipt Date: 20040917
  Transmission Date: 20050211
  Serious: Yes (Life-Threatening, Other)
  Sender: FDA-Public Use
  Company Number: HQWYE114317SEP04

PATIENT
  Age: 27 Year
  Sex: Male

DRUGS (6)
  1. PANTOZOL (PANTOPRAZOLE, TABLET, DELAYED RELEASE) [Suspect]
     Indication: HELICOBACTER GASTRITIS
     Dosage: 40 MG 2X PER 1 DAY
     Route: 048
  2. ZENOPRIL (PHENYTOIN) [Concomitant]
  3. SUBUTEX [Concomitant]
  4. AMOXICILLIN [Suspect]
     Indication: HELICOBACTER GASTRITIS
     Dosage: 1000 MG 2X PER 1 DAY
     Route: 048
  5. CARBAMAZEPINE [Suspect]
     Indication: EPILEPSY
     Dosage: 400 MG 3X PR 1 DAY
     Route: 048
  6. CLARITHROMYCIN [Suspect]
     Indication: HELICOBACTER GASTRITIS
     Dosage: 500 MG 2X PER 1 DAY
     Route: 048

REACTIONS (4)
  - DRUG INTERACTION [None]
  - DYSPNOEA [None]
  - HYPERHIDROSIS [None]
  - TACHYCARDIA [None]
